FAERS Safety Report 7305017-5 (Version None)
Quarter: 2011Q1

REPORT INFORMATION
  Report Type: 
  Country: None (occurrence: None)
  Receive Date: 20110222
  Receipt Date: 20100513
  Transmission Date: 20110831
  Serious: No
  Sender: FDA-Public Use
  Company Number: US-PFIZER INC-2010061060

PATIENT
  Sex: Female
  Weight: 65.76 kg

DRUGS (5)
  1. AMLODIPINE [Concomitant]
     Indication: HEART RATE IRREGULAR
     Dosage: 5 MG, 1X/DAY
  2. XALATAN [Suspect]
     Indication: GLAUCOMA
     Dosage: 5 ML, 1X/DAY
     Route: 047
  3. CRESTOR [Concomitant]
     Indication: BLOOD CHOLESTEROL
     Dosage: 5 MG, 1X/DAY
     Route: 048
  4. LATANOPROST [Suspect]
     Dosage: UNK
  5. METOPROLOL [Concomitant]
     Indication: HYPERTENSION
     Dosage: 100 MG, 1X/DAY

REACTIONS (2)
  - DRUG INEFFECTIVE [None]
  - EXPIRED DRUG ADMINISTERED [None]
